FAERS Safety Report 17685899 (Version 3)
Quarter: 2023Q4

REPORT INFORMATION
  Report Type: Spontaneous
  Country: US (occurrence: None)
  Receive Date: 20200420
  Receipt Date: 20231006
  Transmission Date: 20240110
  Serious: Yes (Other)
  Sender: FDA-Public Use
  Company Number: 2020SE50481

PATIENT
  Age: 44 Year
  Sex: Female

DRUGS (50)
  1. NEXIUM [Suspect]
     Active Substance: ESOMEPRAZOLE MAGNESIUM
     Indication: Gastrooesophageal reflux disease
     Route: 048
     Dates: start: 200001, end: 201612
  2. PRILOSEC [Suspect]
     Active Substance: OMEPRAZOLE MAGNESIUM
     Indication: Gastrooesophageal reflux disease
     Route: 048
     Dates: start: 200001, end: 201612
  3. PRILOSEC [Suspect]
     Active Substance: OMEPRAZOLE MAGNESIUM
     Indication: Gastrooesophageal reflux disease
     Dosage: GENERIC
     Route: 065
  4. PRILOSEC [Suspect]
     Active Substance: OMEPRAZOLE MAGNESIUM
     Indication: Gastrooesophageal reflux disease
     Dosage: GENERIC
     Route: 065
     Dates: start: 2013
  5. PRILOSEC [Suspect]
     Active Substance: OMEPRAZOLE MAGNESIUM
     Indication: Gastrooesophageal reflux disease
     Route: 048
     Dates: start: 2000, end: 2016
  6. PRILOSEC [Suspect]
     Active Substance: OMEPRAZOLE MAGNESIUM
     Indication: Gastrooesophageal reflux disease
     Dosage: GENERIC
     Route: 065
     Dates: start: 20070605, end: 20210313
  7. PRILOSEC [Suspect]
     Active Substance: OMEPRAZOLE MAGNESIUM
     Indication: Gastrooesophageal reflux disease
     Route: 048
     Dates: start: 2000, end: 2016
  8. PREVACID [Suspect]
     Active Substance: LANSOPRAZOLE
     Indication: Gastrooesophageal reflux disease
     Route: 065
     Dates: start: 200001, end: 201612
  9. PREVACID [Suspect]
     Active Substance: LANSOPRAZOLE
     Indication: Gastrooesophageal reflux disease
     Route: 065
     Dates: start: 2003, end: 2016
  10. PREVACID [Suspect]
     Active Substance: LANSOPRAZOLE
     Indication: Gastrooesophageal reflux disease
     Dosage: 30.0MG UNKNOWN
     Route: 065
     Dates: start: 20030807, end: 20031006
  11. PREVACID [Suspect]
     Active Substance: LANSOPRAZOLE
     Indication: Gastrooesophageal reflux disease
     Dosage: 30.0MG UNKNOWN
     Route: 065
     Dates: start: 20040408, end: 20040508
  12. PROTONIX [Suspect]
     Active Substance: PANTOPRAZOLE SODIUM
     Indication: Gastrooesophageal reflux disease
     Route: 065
     Dates: start: 200001, end: 201612
  13. PROTONIX [Suspect]
     Active Substance: PANTOPRAZOLE SODIUM
     Indication: Gastrooesophageal reflux disease
     Dosage: GENERIC, DAILY
     Route: 065
  14. PROTONIX [Suspect]
     Active Substance: PANTOPRAZOLE SODIUM
     Indication: Gastrooesophageal reflux disease
     Route: 065
     Dates: start: 2003, end: 2016
  15. PROTONIX [Suspect]
     Active Substance: PANTOPRAZOLE SODIUM
     Indication: Gastrooesophageal reflux disease
     Route: 065
     Dates: start: 20180209, end: 20210515
  16. PROTONIX [Suspect]
     Active Substance: PANTOPRAZOLE SODIUM
     Indication: Gastrooesophageal reflux disease
     Dosage: 40.0MG UNKNOWN
     Route: 065
     Dates: start: 20170706, end: 20170805
  17. PROTONIX [Suspect]
     Active Substance: PANTOPRAZOLE SODIUM
     Indication: Gastrooesophageal reflux disease
     Dosage: 40.0MG UNKNOWN
     Route: 065
     Dates: start: 20171103, end: 20171203
  18. PROTONIX [Suspect]
     Active Substance: PANTOPRAZOLE SODIUM
     Indication: Gastrooesophageal reflux disease
     Dosage: 40.0MG UNKNOWN
     Route: 065
     Dates: start: 20180209, end: 20180213
  19. MORPHINE [Concomitant]
     Active Substance: MORPHINE
     Indication: Pain
     Dates: start: 20180206, end: 20221012
  20. NORTRIPTYLINE [Concomitant]
     Active Substance: NORTRIPTYLINE
     Indication: Depression
     Dates: start: 20180524, end: 20220930
  21. DIAZEPAM [Concomitant]
     Active Substance: DIAZEPAM
     Indication: Anxiety
     Dates: start: 20180423, end: 20221020
  22. BACLOFEN [Concomitant]
     Active Substance: BACLOFEN
     Indication: Muscle relaxant therapy
     Dates: start: 20180206, end: 20221012
  23. GABAPENTIN [Concomitant]
     Active Substance: GABAPENTIN
     Dates: start: 20180302, end: 20220919
  24. ATORVASTATIN [Concomitant]
     Active Substance: ATORVASTATIN
     Indication: Blood cholesterol
     Dates: start: 20101120, end: 20220930
  25. MONTELUKAST [Concomitant]
     Active Substance: MONTELUKAST SODIUM
     Indication: Analgesic intervention supportive therapy
     Dates: start: 20181212, end: 20220606
  26. ZOLOFT [Concomitant]
     Active Substance: SERTRALINE HYDROCHLORIDE
  27. NITROGLYCERIN [Concomitant]
     Active Substance: NITROGLYCERIN
  28. FUROSEMIDE [Concomitant]
     Active Substance: FUROSEMIDE
  29. LIPITOR [Concomitant]
     Active Substance: ATORVASTATIN CALCIUM
  30. COLACE [Concomitant]
     Active Substance: DOCUSATE SODIUM
  31. DOPAMINE [Concomitant]
     Active Substance: DOPAMINE HYDROCHLORIDE
  32. HYDROCODONE [Concomitant]
     Active Substance: HYDROCODONE
  33. GLUCOPHAGE [Concomitant]
     Active Substance: METFORMIN HYDROCHLORIDE
  34. ALBUTEROL [Concomitant]
     Active Substance: ALBUTEROL
  35. PROZAC [Concomitant]
     Active Substance: FLUOXETINE HYDROCHLORIDE
  36. LISINOPRIL [Concomitant]
     Active Substance: LISINOPRIL
     Indication: Blood pressure measurement
     Dates: start: 20180301, end: 20220426
  37. METOPROLOL [Concomitant]
     Active Substance: METOPROLOL
  38. TRAZODONE [Concomitant]
     Active Substance: TRAZODONE HYDROCHLORIDE
  39. CLARITIN [Concomitant]
     Active Substance: LORATADINE
  40. SAVELLA [Concomitant]
     Active Substance: MILNACIPRAN HYDROCHLORIDE
  41. PROAIR HFA [Concomitant]
     Active Substance: ALBUTEROL SULFATE
  42. AZITHROMYCIN [Concomitant]
     Active Substance: AZITHROMYCIN
     Indication: Infection
     Dates: start: 20180710
  43. TETRACYCLINE [Concomitant]
     Active Substance: TETRACYCLINE
     Indication: Infection
     Dates: start: 20180111
  44. MELOXICAM [Concomitant]
     Active Substance: MELOXICAM
     Indication: Pain
     Dates: start: 20190108, end: 20191030
  45. AMOXICILLIN\CLAVULANATE POTASSIUM [Concomitant]
     Active Substance: AMOXICILLIN\CLAVULANATE POTASSIUM
     Indication: Infection
     Dates: start: 20190222, end: 20190516
  46. CIPROFLOXACIN [Concomitant]
     Active Substance: CIPROFLOXACIN
     Indication: Infection
     Dates: start: 20220112, end: 20220504
  47. TRAMADOL [Concomitant]
     Active Substance: TRAMADOL\TRAMADOL HYDROCHLORIDE
     Indication: Pain
     Dates: start: 20190918
  48. CELECOXIB [Concomitant]
     Active Substance: CELECOXIB
     Indication: Analgesic intervention supportive therapy
     Dates: start: 20190409
  49. SULFAMETH [Concomitant]
     Indication: Infection
     Dates: start: 20190305
  50. FAMOTIDINE [Concomitant]
     Active Substance: FAMOTIDINE
     Dates: start: 20190313

REACTIONS (4)
  - Chronic kidney disease [Not Recovered/Not Resolved]
  - Acute kidney injury [Not Recovered/Not Resolved]
  - Renal failure [Not Recovered/Not Resolved]
  - Anxiety [Unknown]

NARRATIVE: CASE EVENT DATE: 20130101
